FAERS Safety Report 20418688 (Version 1)
Quarter: 2022Q1

REPORT INFORMATION
  Report Type: Spontaneous
  Country: UA (occurrence: UA)
  Receive Date: 20220202
  Receipt Date: 20220202
  Transmission Date: 20220423
  Serious: Yes (Hospitalization, Other)
  Sender: FDA-Public Use
  Company Number: UA-BIOMARINAP-UA-2022-141224

PATIENT
  Age: 12 Year
  Sex: Female

DRUGS (1)
  1. NAGLAZYME [Suspect]
     Active Substance: GALSULFASE
     Indication: Mucopolysaccharidosis VI
     Dosage: 1 MILLIGRAM/KILOGRAM, QW
     Route: 041

REACTIONS (45)
  - Respiratory disorder [Unknown]
  - Disease progression [Unknown]
  - Pulmonary fibrosis [Unknown]
  - Respiratory failure [Unknown]
  - Circulatory collapse [Unknown]
  - Pulmonary hypertension [Unknown]
  - Oxygen saturation decreased [Unknown]
  - Cardiac failure [Unknown]
  - Glaucoma [Unknown]
  - Conductive deafness [Unknown]
  - Cyanosis [Unknown]
  - Dyspnoea [Unknown]
  - Cough [Unknown]
  - Asthenia [Unknown]
  - Respiratory tract infection [Unknown]
  - Cardiac valve disease [Unknown]
  - Hepatosplenomegaly [Unknown]
  - Visual impairment [Unknown]
  - Hypoacusis [Unknown]
  - Dysmorphism [Unknown]
  - Abdominal hernia [Unknown]
  - Arthropathy [Unknown]
  - Congenital musculoskeletal anomaly [Unknown]
  - Osteogenesis imperfecta [Unknown]
  - Pulmonary granuloma [Unknown]
  - Inflammation [Unknown]
  - Cardiomegaly [Unknown]
  - Mitral valve stenosis [Unknown]
  - Pulmonary artery dilatation [Unknown]
  - Constipation [Unknown]
  - Adenoidal hypertrophy [Unknown]
  - Tonsillar hypertrophy [Unknown]
  - Otitis media [Unknown]
  - Optic nerve disorder [Unknown]
  - Mitral valve incompetence [Unknown]
  - Cardiomyopathy [Unknown]
  - Pneumonia [Unknown]
  - Scoliosis [Unknown]
  - Biliary tract disorder [Unknown]
  - Congenital osteodystrophy [Unknown]
  - Developmental hip dysplasia [Unknown]
  - Gait disturbance [Unknown]
  - Bone disorder [Unknown]
  - Umbilical hernia [Unknown]
  - Corneal opacity [Unknown]
